FAERS Safety Report 17282019 (Version 2)
Quarter: 2020Q1

REPORT INFORMATION
  Report Type: Spontaneous
  Country: US (occurrence: US)
  Receive Date: 20200117
  Receipt Date: 20200227
  Transmission Date: 20200409
  Serious: No
  Sender: FDA-Public Use
  Company Number: US-GLAXOSMITHKLINE-US2020007118

PATIENT
  Age: 61 Year
  Sex: Female

DRUGS (4)
  1. DICLOFENAC SODIUM GEL [Suspect]
     Active Substance: DICLOFENAC SODIUM
     Indication: SCIATICA
     Dosage: UPTO 4 TIMES
     Dates: start: 20191226
  2. ACETAMINOPHEN + CODEINE [Suspect]
     Active Substance: ACETAMINOPHEN\CODEINE PHOSPHATE
     Indication: PAIN
     Dosage: 2 TO 3
     Route: 065
  3. CYCLOBENZAPRINE TABLET [Suspect]
     Active Substance: CYCLOBENZAPRINE
     Indication: PRODUCT USED FOR UNKNOWN INDICATION
     Dosage: 3 DF, PRN
     Route: 065
  4. IBUPROFEN. [Suspect]
     Active Substance: IBUPROFEN
     Indication: PRODUCT USED FOR UNKNOWN INDICATION
     Dosage: 3 DF, PRN
     Route: 048

REACTIONS (4)
  - Product administered at inappropriate site [Unknown]
  - Arthropathy [Not Recovered/Not Resolved]
  - Product use in unapproved indication [Unknown]
  - Incorrect dose administered [Unknown]

NARRATIVE: CASE EVENT DATE: 20191226
